FAERS Safety Report 24071185 (Version 1)
Quarter: 2024Q3

REPORT INFORMATION
  Report Type: Report from Study
  Country: US (occurrence: US)
  Receive Date: 20240710
  Receipt Date: 20240710
  Transmission Date: 20241017
  Serious: No
  Sender: ROCHE
  Company Number: US-ROCHE-3574968

PATIENT
  Age: 50 Year
  Sex: Female

DRUGS (1)
  1. EVRYSDI [Suspect]
     Active Substance: RISDIPLAM
     Indication: Spinal muscular atrophy
     Route: 065

REACTIONS (5)
  - Fatigue [Unknown]
  - Asthenia [Unknown]
  - Paraesthesia [Unknown]
  - Product dose omission issue [Unknown]
  - Muscular weakness [Unknown]
